FAERS Safety Report 14115289 (Version 5)
Quarter: 2018Q1

REPORT INFORMATION
  Report Type: Spontaneous
  Country: GB (occurrence: GB)
  Receive Date: 20171023
  Receipt Date: 20180221
  Transmission Date: 20180508
  Serious: Yes (Other)
  Sender: FDA-Public Use
  Company Number: GB-TEVA-815716ACC

PATIENT
  Age: 62 Year
  Sex: Male
  Weight: 90 kg

DRUGS (27)
  1. CARBOMER 980 [Concomitant]
     Active Substance: CARBOMER HOMOPOLYMER TYPE C (ALLYL PENTAERYTHRITOL CROSSLINKED)
     Route: 065
     Dates: start: 20170314
  2. HYLO-FORTE [Concomitant]
     Active Substance: HYALURONATE SODIUM
     Dosage: APPLY.
     Dates: start: 20170314
  3. LOSARTAN. [Concomitant]
     Active Substance: LOSARTAN
     Dosage: 1 DOSAGE FORMS DAILY;
     Route: 065
     Dates: start: 20170314
  4. MUCODYNE [Concomitant]
     Active Substance: CARBOCYSTEINE
     Dosage: 3 DOSAGE FORMS DAILY;
     Dates: start: 20170314
  5. FLUTICASONE FUROATE [Concomitant]
     Active Substance: FLUTICASONE FUROATE
     Dosage: 2 DOSAGE FORMS DAILY; EACH NOSTRIL.
     Route: 045
     Dates: start: 20170314
  6. ZEROCREAM [Concomitant]
     Dosage: TO BE APPLIED TWICE A DAY.
     Dates: start: 20160211
  7. GABAPENTIN. [Suspect]
     Active Substance: GABAPENTIN
     Indication: BACK PAIN
     Route: 065
     Dates: start: 20170915
  8. BRINZOLAMIDE [Concomitant]
     Active Substance: BRINZOLAMIDE
     Dosage: 2 GTT DAILY;
     Dates: start: 20170314
  9. CYCLIZINE [Concomitant]
     Active Substance: CYCLIZINE
     Indication: NAUSEA
     Dosage: 3 DOSAGE FORMS DAILY;
     Route: 065
     Dates: start: 20170314
  10. HYOSCINE BUTYLBROMIDE [Concomitant]
     Active Substance: BUTYLSCOPOLAMINE
     Dosage: TAKE ONE-TWO 4 TIMES/DAY.
     Dates: start: 20170314
  11. IPRATROPIUM BROMIDE. [Concomitant]
     Active Substance: IPRATROPIUM BROMIDE
     Dosage: 4 DOSAGE FORMS DAILY;
     Route: 055
     Dates: start: 20170314
  12. PREGABALIN. [Concomitant]
     Active Substance: PREGABALIN
     Dosage: 2 DOSAGE FORMS DAILY;
     Dates: start: 20170919
  13. TRAMADOL. [Concomitant]
     Active Substance: TRAMADOL
     Dosage: TAKE ONE TO TWO CAPSULES  FOUR TIMES DAILY AS R
     Dates: start: 20170314
  14. ACENOCOUMAROL [Concomitant]
     Active Substance: ACENOCOUMAROL
     Dosage: TAKE AS PER WAFARIN CLINIC.
     Dates: start: 20170314
  15. ATORVASTATIN [Concomitant]
     Active Substance: ATORVASTATIN
     Dosage: 1 DOSAGE FORMS DAILY;
     Route: 065
     Dates: start: 20170314
  16. MONTELUKAST [Concomitant]
     Active Substance: MONTELUKAST SODIUM
     Dosage: 1 DOSAGE FORMS DAILY; NIGHT AS PER HOSPITAL.
     Dates: start: 20170314
  17. PREDNISOLONE. [Concomitant]
     Active Substance: PREDNISOLONE
     Dosage: 4 DOSAGE FORMS DAILY; MORNING AS PER HOSPITAL.
     Dates: start: 20170314
  18. SYMBICORT [Concomitant]
     Active Substance: BUDESONIDE\FORMOTEROL FUMARATE DIHYDRATE
     Dosage: 6 DOSAGE FORMS DAILY;
     Route: 055
     Dates: start: 20170314
  19. THEOPHYLLINE [Concomitant]
     Active Substance: THEOPHYLLINE ANHYDROUS
     Dosage: 3 DOSAGE FORMS DAILY; TAKE ONE EVERY MORNING AND TWO EVERY EVENING.
     Dates: start: 20170314
  20. CETIRIZINE [Concomitant]
     Active Substance: CETIRIZINE HYDROCHLORIDE
     Dosage: EVERY DAY.
     Route: 065
     Dates: start: 20170314
  21. SALBUTAMOL [Concomitant]
     Active Substance: ALBUTEROL
     Dosage: 4 DOSAGE FORMS DAILY;
     Route: 055
     Dates: start: 20170314
  22. AZITHROMYCIN ANHYDROUS. [Concomitant]
     Active Substance: AZITHROMYCIN ANHYDROUS
     Dosage: OR AS DIRECTED.
     Dates: start: 20170314
  23. MONOPOST [Concomitant]
     Dosage: USE AS DIRECTED BY THE EYE TEAM.
     Dates: start: 20170704
  24. ADCAL [Concomitant]
     Active Substance: CALCIUM CARBONATE
     Dosage: 4 DOSAGE FORMS DAILY; AS PER ENDOCRINOLOGY.
     Dates: start: 20170314
  25. INDAPAMIDE. [Concomitant]
     Active Substance: INDAPAMIDE
     Dosage: 1 DOSAGE FORMS DAILY; EACH MORNING.
     Route: 065
     Dates: start: 20170314
  26. PANTOPRAZOLE [Concomitant]
     Active Substance: PANTOPRAZOLE
     Dosage: 1 DOSAGE FORMS DAILY;
     Route: 065
     Dates: start: 20170314
  27. QUININE [Concomitant]
     Active Substance: QUININE
     Dosage: EVERY NIGHT.
     Dates: start: 20170314

REACTIONS (1)
  - Wheezing [Recovered/Resolved]

NARRATIVE: CASE EVENT DATE: 20170915
